FAERS Safety Report 9278494 (Version 1)
Quarter: 2013Q2

REPORT INFORMATION
  Report Type: Spontaneous
  Country: KR (occurrence: KR)
  Receive Date: 20130508
  Receipt Date: 20130508
  Transmission Date: 20140414
  Serious: Yes (Other)
  Sender: FDA-Public Use
  Company Number: KR-JNJFOC-20130416970

PATIENT
  Sex: Male

DRUGS (2)
  1. TYLENOL EXTENDED RELIEF [Suspect]
     Route: 048
  2. TYLENOL EXTENDED RELIEF [Suspect]
     Indication: LYMPHADENOPATHY
     Dosage: 650 MG/TABLET,3 TIMES IN 1 DAY
     Route: 048
     Dates: start: 20130304, end: 20130307

REACTIONS (1)
  - Hepatitis [Recovered/Resolved]
